FAERS Safety Report 24618922 (Version 1)
Quarter: 2024Q4

REPORT INFORMATION
  Report Type: Spontaneous
  Country: US (occurrence: None)
  Receive Date: 20241113
  Receipt Date: 20241113
  Transmission Date: 20250115
  Serious: Yes (Disabling, Other)
  Sender: Public
  Company Number: None

PATIENT
  Age: 44 Year
  Sex: Female

DRUGS (1)
  1. POLYETHYLENE GLYCOL [Suspect]
     Active Substance: POLYETHYLENE GLYCOL

REACTIONS (12)
  - Throat clearing [None]
  - Anal incontinence [None]
  - Abdominal pain upper [None]
  - Feeling cold [None]
  - Dry throat [None]
  - Oropharyngeal pain [None]
  - Food intolerance [None]
  - Dyspepsia [None]
  - Abnormal loss of weight [None]
  - Gastrooesophageal reflux disease [None]
  - Insomnia [None]
  - Dysgeusia [None]

NARRATIVE: CASE EVENT DATE: 20240903
